FAERS Safety Report 9825183 (Version 1)
Quarter: 2013Q4

REPORT INFORMATION
  Report Type: Spontaneous
  Country: US (occurrence: None)
  Receive Date: 20131028
  Receipt Date: 20131028
  Transmission Date: 20140711
  Serious: Yes (Other)
  Sender: FDA-Public Use
  Company Number: 2013US001320

PATIENT
  Age: 58 Year
  Sex: Female
  Weight: 62 kg

DRUGS (5)
  1. ICLUSIG [Suspect]
     Indication: CHRONIC MYELOID LEUKAEMIA
     Route: 048
     Dates: start: 20130118
  2. NORVASC (AMLODIPINE BESILATE) [Concomitant]
  3. LISINOPRIL (LISINOPRIL) [Concomitant]
  4. COREG (CARVEDILOL) [Concomitant]
  5. HYDROCHLOROTHIAZIDE (HYDROCHLOROTHIAZIDE) [Concomitant]

REACTIONS (5)
  - Skin discolouration [None]
  - Dry skin [None]
  - Constipation [None]
  - Lipase increased [None]
  - Amylase increased [None]
